FAERS Safety Report 25118153 (Version 1)
Quarter: 2025Q1

REPORT INFORMATION
  Report Type: Spontaneous
  Country: US (occurrence: US)
  Receive Date: 20250325
  Receipt Date: 20250325
  Transmission Date: 20250409
  Serious: No
  Sender: Methapharma
  Company Number: US-METHAPHARM-2025-MET-000200

PATIENT
  Age: 25 Year
  Sex: Female
  Weight: 252 kg

DRUGS (4)
  1. PROVOCHOLINE INHALATION SOLUTION [Suspect]
     Active Substance: METHACHOLINE CHLORIDE
     Indication: Investigation
     Dates: start: 20250312, end: 20250312
  2. PANTOPRAZOLE [Concomitant]
     Active Substance: PANTOPRAZOLE
  3. ZOLOFT [Concomitant]
     Active Substance: SERTRALINE HYDROCHLORIDE
  4. ALBUTEROL [Concomitant]
     Active Substance: ALBUTEROL

REACTIONS (1)
  - Vomiting [Not Recovered/Not Resolved]

NARRATIVE: CASE EVENT DATE: 20250312
